FAERS Safety Report 8185254-0 (Version None)
Quarter: 2012Q1

REPORT INFORMATION
  Report Type: 
  Country: None (occurrence: None)
  Receive Date: 20120305
  Receipt Date: 20120223
  Transmission Date: 20120608
  Serious: Yes (Other)
  Sender: FDA-Public Use
  Company Number: PHHY2012AU002604

PATIENT
  Sex: Female
  Weight: 70 kg

DRUGS (11)
  1. CITALOPRAM HYDROBROMIDE [Concomitant]
     Dosage: 1 DF, UNK
  2. PANTOPRAZOLE SODIUM [Concomitant]
  3. ZOLEDRONOC ACID [Suspect]
     Indication: OSTEOPOROSIS
     Dosage: 5 MG, UNK
     Route: 042
     Dates: start: 20120109
  4. ENDEP [Concomitant]
  5. LEVOTHYROXINE SODIUM [Concomitant]
     Dosage: UNK
  6. AZOPT [Concomitant]
     Dosage: 5 ML, UNK
  7. RANITIDINE [Concomitant]
  8. ARICEPT [Concomitant]
     Dosage: 1 DF, UNK
  9. PANAMAX [Concomitant]
     Dosage: 1 DF, BID
  10. ELOCON [Concomitant]
     Dosage: APPLY ONCE DAILY
  11. XALATAN [Concomitant]

REACTIONS (8)
  - DEMENTIA [None]
  - PYREXIA [None]
  - MENTAL IMPAIRMENT [None]
  - CIRCULATORY COLLAPSE [None]
  - DEHYDRATION [None]
  - ASTHENIA [None]
  - DYSSTASIA [None]
  - URINARY TRACT INFECTION [None]
